FAERS Safety Report 25231499 (Version 1)
Quarter: 2025Q2

REPORT INFORMATION
  Report Type: Spontaneous
  Country: VN (occurrence: VN)
  Receive Date: 20250423
  Receipt Date: 20250423
  Transmission Date: 20250716
  Serious: Yes (Other)
  Sender: ELI LILLY AND COMPANY
  Company Number: VN-ELI_LILLY_AND_COMPANY-VN202504017899

PATIENT
  Age: 57 Year
  Sex: Male

DRUGS (2)
  1. CYRAMZA [Suspect]
     Active Substance: RAMUCIRUMAB
     Indication: Lung adenocarcinoma stage IV
     Route: 042
     Dates: start: 20250328
  2. DOCETAXEL [Concomitant]
     Active Substance: DOCETAXEL
     Indication: Lung adenocarcinoma stage IV

REACTIONS (1)
  - Haemoptysis [Not Recovered/Not Resolved]

NARRATIVE: CASE EVENT DATE: 20250411
